FAERS Safety Report 6922390-8 (Version None)
Quarter: 2010Q3

REPORT INFORMATION
  Report Type: 
  Country: None (occurrence: None)
  Receive Date: 20100813
  Receipt Date: 20100802
  Transmission Date: 20110219
  Serious: Yes (Hospitalization)
  Sender: FDA-Public Use
  Company Number: DE-CEPHALON-2010004130

PATIENT
  Sex: Female

DRUGS (2)
  1. TREANDA [Suspect]
     Indication: NON-HODGKIN'S LYMPHOMA
     Route: 042
  2. RITUXIMAB [Suspect]
     Indication: NON-HODGKIN'S LYMPHOMA

REACTIONS (3)
  - COGNITIVE DISORDER [None]
  - GENERAL PHYSICAL HEALTH DETERIORATION [None]
  - PLEURAL EFFUSION [None]
